FAERS Safety Report 7590083-2 (Version None)
Quarter: 2011Q3

REPORT INFORMATION
  Report Type: 
  Country: None (occurrence: None)
  Receive Date: 20110705
  Receipt Date: 20110623
  Transmission Date: 20111222
  Serious: Yes (Other)
  Sender: FDA-Public Use
  Company Number: B0718896A

PATIENT

DRUGS (1)
  1. AVAMYS [Suspect]
     Indication: RHINITIS ALLERGIC
     Route: 065

REACTIONS (1)
  - OESOPHAGEAL CANDIDIASIS [None]
